FAERS Safety Report 10142870 (Version 3)
Quarter: 2014Q3

REPORT INFORMATION
  Report Type: Spontaneous
  Country: US (occurrence: US)
  Receive Date: 20140430
  Receipt Date: 20140820
  Transmission Date: 20150326
  Serious: Yes (Hospitalization)
  Sender: FDA-Public Use
  Company Number: US-JNJFOC-20140415598

PATIENT
  Age: 50 Year
  Sex: Male
  Weight: 99 kg

DRUGS (26)
  1. XARELTO [Suspect]
     Active Substance: RIVAROXABAN
     Indication: THROMBOSIS PROPHYLAXIS
     Route: 048
     Dates: start: 2013
  2. TREXALL [Concomitant]
     Active Substance: METHOTREXATE SODIUM
     Route: 048
  3. IV ANTIBIOTICS [Concomitant]
     Active Substance: UNSPECIFIED INGREDIENT
     Route: 017
  4. KADIAN [Concomitant]
     Active Substance: MORPHINE SULFATE
     Route: 048
  5. SEROQUEL [Concomitant]
     Active Substance: QUETIAPINE FUMARATE
     Route: 048
  6. AVINZA [Concomitant]
     Active Substance: MORPHINE SULFATE
     Route: 065
  7. NEURONTIN [Concomitant]
     Active Substance: GABAPENTIN
     Route: 048
  8. FLEXERIL [Concomitant]
     Active Substance: CYCLOBENZAPRINE HYDROCHLORIDE
     Dosage: AS NEEDED
     Route: 048
  9. CONTRAST DYE [Suspect]
     Active Substance: UNSPECIFIED INGREDIENT
     Indication: PRODUCT USED FOR UNKNOWN INDICATION
     Route: 065
     Dates: start: 20140410
  10. BACTRIM [Concomitant]
     Active Substance: SULFAMETHOXAZOLE\TRIMETHOPRIM
     Route: 065
  11. SINGULAIR [Concomitant]
     Active Substance: MONTELUKAST SODIUM
     Route: 048
  12. FLOMAX [Concomitant]
     Active Substance: TAMSULOSIN HYDROCHLORIDE
     Route: 048
  13. FLONASE [Concomitant]
     Active Substance: FLUTICASONE PROPIONATE
     Route: 065
  14. NORCO [Concomitant]
     Active Substance: ACETAMINOPHEN\HYDROCODONE BITARTRATE
     Route: 048
  15. LITHIUM CARBONATE. [Concomitant]
     Active Substance: LITHIUM CARBONATE
     Route: 048
  16. ALBUTEROL. [Concomitant]
     Active Substance: ALBUTEROL
     Route: 065
  17. EMBEDA (MORPHINE SULFATE/NALTREXONE HYDROCHLORIDE) [Concomitant]
     Dosage: AS NEEDED
     Route: 048
  18. TENORMIN [Concomitant]
     Active Substance: ATENOLOL
     Route: 048
  19. VITAMIN D [Concomitant]
     Active Substance: CHOLECALCIFEROL
     Route: 065
  20. ATROVENT [Concomitant]
     Active Substance: IPRATROPIUM BROMIDE
     Route: 045
  21. CELEXA [Concomitant]
     Active Substance: CITALOPRAM HYDROBROMIDE
     Route: 048
  22. ORASONE [Concomitant]
     Active Substance: PREDNISONE
     Route: 048
  23. VASOTEC [Concomitant]
     Active Substance: ENALAPRIL MALEATE
     Route: 048
  24. FOLIC ACID. [Concomitant]
     Active Substance: FOLIC ACID
     Route: 048
  25. PRILOSEC [Concomitant]
     Active Substance: OMEPRAZOLE MAGNESIUM
     Route: 048
  26. ENDOCET [Concomitant]
     Active Substance: ACETAMINOPHEN\OXYCODONE HYDROCHLORIDE
     Route: 048

REACTIONS (2)
  - Creatinine renal clearance decreased [Recovered/Resolved]
  - Colitis [Recovered/Resolved]

NARRATIVE: CASE EVENT DATE: 20140419
